FAERS Safety Report 20062480 (Version 1)
Quarter: 2021Q4

REPORT INFORMATION
  Report Type: Report from Study
  Country: CH (occurrence: CH)
  Receive Date: 20211112
  Receipt Date: 20211112
  Transmission Date: 20220304
  Serious: Yes (Other)
  Sender: FDA-Public Use
  Company Number: CH-JNJFOC-20211114335

PATIENT

DRUGS (8)
  1. REMICADE [Suspect]
     Active Substance: INFLIXIMAB
     Indication: Behcet^s syndrome
     Route: 042
  2. REMICADE [Suspect]
     Active Substance: INFLIXIMAB
     Indication: Uveitis
  3. REMICADE [Suspect]
     Active Substance: INFLIXIMAB
     Indication: Scleritis
  4. REMICADE [Suspect]
     Active Substance: INFLIXIMAB
     Indication: Autoimmune uveitis
  5. REMICADE [Suspect]
     Active Substance: INFLIXIMAB
     Indication: Granulomatosis with polyangiitis
  6. REMICADE [Suspect]
     Active Substance: INFLIXIMAB
     Indication: Ocular sarcoidosis
  7. REMICADE [Suspect]
     Active Substance: INFLIXIMAB
     Indication: Autoimmune uveitis
  8. REMICADE [Suspect]
     Active Substance: INFLIXIMAB
     Indication: Uveitis

REACTIONS (12)
  - Neoplasm malignant [Unknown]
  - Tuberculosis [Unknown]
  - Hepatitis viral [Unknown]
  - Infection [Unknown]
  - Headache [Unknown]
  - Dizziness [Unknown]
  - Nausea [Unknown]
  - Diarrhoea [Unknown]
  - Hepatic enzyme increased [Unknown]
  - Hypersensitivity [Unknown]
  - Rash [Unknown]
  - Fatigue [Unknown]
